FAERS Safety Report 8128036-8 (Version None)
Quarter: 2012Q1

REPORT INFORMATION
  Report Type: 
  Country: None (occurrence: None)
  Receive Date: 20120210
  Receipt Date: 20120203
  Transmission Date: 20120608
  Serious: Yes (Hospitalization, Other)
  Sender: FDA-Public Use
  Company Number: US-JNJFOC-20111106897

PATIENT
  Sex: Female

DRUGS (7)
  1. SOLU-MEDROL [Suspect]
     Indication: PRODUCT USED FOR UNKNOWN INDICATION
     Route: 048
     Dates: start: 20080801
  2. LEVAQUIN [Suspect]
     Indication: PNEUMONIA
     Route: 042
     Dates: start: 20080722
  3. LEVAQUIN [Suspect]
     Indication: INFECTION
     Route: 048
     Dates: end: 20060101
  4. PREDNISONE TAB [Suspect]
     Indication: PRODUCT USED FOR UNKNOWN INDICATION
     Route: 048
     Dates: start: 20080801
  5. FLAGYL [Concomitant]
     Indication: PRODUCT USED FOR UNKNOWN INDICATION
     Route: 048
     Dates: start: 20080801
  6. DEPO-MEDROL [Suspect]
     Indication: PRODUCT USED FOR UNKNOWN INDICATION
     Route: 048
     Dates: start: 20080801
  7. STEROIDS NOS [Suspect]
     Indication: PRODUCT USED FOR UNKNOWN INDICATION
     Route: 042
     Dates: start: 20080801

REACTIONS (14)
  - TENDON RUPTURE [None]
  - DYSPNOEA [None]
  - TENDON PAIN [None]
  - MYALGIA [None]
  - OEDEMA MOUTH [None]
  - TENDON DISORDER [None]
  - ANXIETY [None]
  - PANIC ATTACK [None]
  - PRURITUS [None]
  - RASH [None]
  - TENDONITIS [None]
  - ARTHRALGIA [None]
  - PYREXIA [None]
  - TENOSYNOVITIS [None]
